FAERS Safety Report 16296565 (Version 1)
Quarter: 2019Q2

REPORT INFORMATION
  Report Type: Spontaneous
  Country: US (occurrence: US)
  Receive Date: 20190510
  Receipt Date: 20190510
  Transmission Date: 20190711
  Serious: No
  Sender: FDA-Public Use
  Company Number: US-PFIZER INC-2019199325

PATIENT

DRUGS (1)
  1. PREMARIN [Suspect]
     Active Substance: ESTROGENS, CONJUGATED
     Indication: CYSTITIS
     Dosage: UNK UNK, CYCLIC

REACTIONS (4)
  - Off label use [Unknown]
  - Tinnitus [Unknown]
  - Hypoacusis [Unknown]
  - Product use in unapproved indication [Unknown]
